FAERS Safety Report 23193457 (Version 1)
Quarter: 2023Q4

REPORT INFORMATION
  Report Type: Spontaneous
  Country: NL (occurrence: NL)
  Receive Date: 20231116
  Receipt Date: 20231116
  Transmission Date: 20240109
  Serious: Yes (Other)
  Sender: FDA-Public Use
  Company Number: None

PATIENT
  Age: 54 Year
  Sex: Male

DRUGS (5)
  1. METHOTREXATE [Suspect]
     Active Substance: METHOTREXATE
     Indication: Psoriatic arthropathy
     Dosage: 8 TABLETS ONCE A WEEK   , METHOTREXAAT
     Dates: start: 2013
  2. HUMIRA [Suspect]
     Active Substance: ADALIMUMAB
     Indication: Psoriatic arthropathy
     Dosage: 40MG ONCE/2 WEEKS   , ADALIMUMAB INJVLST , PEN 0.4ML
     Dates: start: 201905, end: 202206
  3. HUMIRA [Suspect]
     Active Substance: ADALIMUMAB
     Dosage: 40MG ONCE/4 WEEKS ,   ADALIMUMAB INJVLST , PEN 0.4ML
     Dates: start: 202206
  4. ALLOPURINOL [Concomitant]
     Active Substance: ALLOPURINOL
     Indication: Product used for unknown indication
     Dosage: 300 MILLIGRAM DAILY; 1DD1
  5. FOLIUMZUUR AUROBINDO [Concomitant]
     Indication: Product used for unknown indication
     Dosage: 1X PER WEEK 1  , FOLIUMZUUR

REACTIONS (1)
  - Lentigo maligna [Unknown]

NARRATIVE: CASE EVENT DATE: 20221201
